FAERS Safety Report 5773060-3 (Version None)
Quarter: 2008Q2

REPORT INFORMATION
  Report Type: 
  Country: None (occurrence: None)
  Receive Date: 20080611
  Receipt Date: 20080604
  Transmission Date: 20081010
  Serious: Yes (Other)
  Sender: FDA-Public Use
  Company Number: 2008014539

PATIENT
  Age: 57 Year
  Sex: Female
  Weight: 71.2147 kg

DRUGS (3)
  1. LISTERINE WHITENING QUICK DISSOLVING STRIPS (NO ACTIVE INGREDIENT) [Suspect]
     Indication: DENTAL CARE
     Dosage: 2 STRIPS,ORAL
     Route: 048
     Dates: start: 20080603, end: 20080603
  2. PLAVIX [Concomitant]
  3. ZETIA [Concomitant]

REACTIONS (6)
  - BURNING SENSATION [None]
  - FEELING HOT [None]
  - LIP BLISTER [None]
  - LIP SWELLING [None]
  - ORAL DISCOMFORT [None]
  - OROPHARYNGEAL BLISTERING [None]
